FAERS Safety Report 13466962 (Version 2)
Quarter: 2017Q2

REPORT INFORMATION
  Report Type: Other
  Country: CA (occurrence: CA)
  Receive Date: 20170421
  Receipt Date: 20170519
  Transmission Date: 20170830
  Serious: Yes (Other)
  Sender: FDA-Public Use
  Company Number: CA-APOTEX-2017AP010308

PATIENT

DRUGS (5)
  1. NICOTINE POLACRILEX [Suspect]
     Active Substance: NICOTINE
     Indication: EX-TOBACCO USER
     Route: 065
  2. VARENICLINE [Suspect]
     Active Substance: VARENICLINE
     Indication: EX-TOBACCO USER
     Dosage: 1 MG, BID
     Route: 065
  3. NICOTINE TRANSDERMAL SYSTEM, 7 MG/DAY [Suspect]
     Active Substance: NICOTINE
     Indication: EX-TOBACCO USER
     Route: 065
  4. NICODERM CQ [Suspect]
     Active Substance: NICOTINE
     Indication: PRODUCT USED FOR UNKNOWN INDICATION
     Dosage: 21 MG, UNK
     Route: 065
  5. NICODERM CQ [Suspect]
     Active Substance: NICOTINE
     Indication: SMOKING CESSATION THERAPY
     Dosage: 35 MG, UNK
     Route: 065

REACTIONS (40)
  - Emotional distress [Unknown]
  - Hot flush [Unknown]
  - Anxiety [Unknown]
  - Rash [Unknown]
  - Arthralgia [Unknown]
  - Hypertonia [Unknown]
  - Paraesthesia [Unknown]
  - Restlessness [Unknown]
  - Withdrawal syndrome [Unknown]
  - Cough [Unknown]
  - Disturbance in attention [Unknown]
  - Dry skin [Unknown]
  - Suicidal ideation [Unknown]
  - Vision blurred [Unknown]
  - Increased appetite [Unknown]
  - Nausea [Unknown]
  - Pain in jaw [Unknown]
  - Diarrhoea [Unknown]
  - Dizziness [Unknown]
  - Insomnia [Unknown]
  - Pruritus [Unknown]
  - Palpitations [Unknown]
  - Lethargy [Unknown]
  - Sinus congestion [Unknown]
  - Sleep disorder [Unknown]
  - Constipation [Unknown]
  - Depression [Unknown]
  - Dysgeusia [Unknown]
  - Dyspnoea [Unknown]
  - Neck pain [Unknown]
  - Drug ineffective [Unknown]
  - Flatulence [Unknown]
  - Libido decreased [Unknown]
  - Somnolence [Unknown]
  - Abnormal dreams [Unknown]
  - Anger [Unknown]
  - Tachycardia [Unknown]
  - Chest pain [Unknown]
  - Dyspepsia [Unknown]
  - Erythema [Unknown]
